FAERS Safety Report 25175436 (Version 4)
Quarter: 2025Q3

REPORT INFORMATION
  Report Type: Report from Study
  Country: US (occurrence: US)
  Receive Date: 20250408
  Receipt Date: 20250803
  Transmission Date: 20251020
  Serious: Yes (Hospitalization)
  Sender: ALEXION PHARMACEUTICALS
  Company Number: US-AstraZeneca-CH-00838955A

PATIENT
  Age: 72 Year
  Sex: Male

DRUGS (1)
  1. SOLIRIS [Suspect]
     Active Substance: ECULIZUMAB
     Indication: Neuromyelitis optica spectrum disorder
     Route: 065

REACTIONS (9)
  - Loss of consciousness [Recovering/Resolving]
  - Blood sodium abnormal [Recovering/Resolving]
  - Blood potassium abnormal [Recovering/Resolving]
  - Blood glucose decreased [Recovering/Resolving]
  - Blood pressure decreased [Unknown]
  - Urinary retention [Unknown]
  - Urinary tract infection [Recovering/Resolving]
  - Blood magnesium abnormal [Unknown]
  - Micturition disorder [Unknown]

NARRATIVE: CASE EVENT DATE: 20250306
